FAERS Safety Report 10074550 (Version 1)
Quarter: 2014Q2

REPORT INFORMATION
  Report Type: Spontaneous
  Country: US (occurrence: US)
  Receive Date: 20140411
  Receipt Date: 20140411
  Transmission Date: 20141212
  Serious: No
  Sender: FDA-Public Use
  Company Number: US-SA-2014SA008437

PATIENT
  Age: 60 Year
  Sex: Male
  Weight: 72.57 kg

DRUGS (2)
  1. ALLEGRA D [Suspect]
     Indication: HYPERSENSITIVITY
     Dosage: 1 TABLET EVERY 12 HOURS FOR A DAY AND A HALF
     Route: 048
     Dates: start: 20140114, end: 20140116
  2. ZOCOR [Concomitant]
     Route: 065
     Dates: start: 2009

REACTIONS (3)
  - Feeling jittery [Recovered/Resolved]
  - Nervousness [Unknown]
  - Insomnia [Recovered/Resolved]
